FAERS Safety Report 10753496 (Version 1)
Quarter: 2015Q1

REPORT INFORMATION
  Report Type: Spontaneous
  Country: US (occurrence: US)
  Receive Date: 20150131
  Receipt Date: 20150131
  Transmission Date: 20150721
  Serious: Yes (Hospitalization)
  Sender: FDA-Public Use
  Company Number: PHHY2015US008438

PATIENT
  Age: 60 Year
  Sex: Male

DRUGS (6)
  1. BACTRIM [Concomitant]
     Active Substance: SULFAMETHOXAZOLE\TRIMETHOPRIM
     Indication: PROPHYLAXIS
     Route: 065
  2. MANNITOL. [Concomitant]
     Active Substance: MANNITOL
     Indication: PRODUCT USED FOR UNKNOWN INDICATION
     Route: 065
  3. TACROLIMUS. [Suspect]
     Active Substance: TACROLIMUS
     Indication: IMMUNOSUPPRESSION
     Route: 065
  4. VORICONAZOLE. [Concomitant]
     Active Substance: VORICONAZOLE
     Route: 048
  5. PREDNISONE. [Suspect]
     Active Substance: PREDNISONE
     Indication: IMMUNOSUPPRESSION
     Route: 065
  6. VORICONAZOLE. [Concomitant]
     Active Substance: VORICONAZOLE
     Indication: ANTIFUNGAL PROPHYLAXIS
     Route: 065

REACTIONS (15)
  - Hallucination [Unknown]
  - Aphasia [Unknown]
  - Seizure [Unknown]
  - Confusional state [Unknown]
  - Speech disorder [Unknown]
  - Brain herniation [Unknown]
  - Hepatitis C [Unknown]
  - Brain oedema [Unknown]
  - Pyrexia [Unknown]
  - Psychomotor retardation [Unknown]
  - Muscular weakness [Unknown]
  - Encephalitis viral [Unknown]
  - Hemianopia homonymous [Unknown]
  - Paraneoplastic encephalomyelitis [Unknown]
  - Encephalopathy [Unknown]
